FAERS Safety Report 21710467 (Version 4)
Quarter: 2023Q2

REPORT INFORMATION
  Report Type: Spontaneous
  Country: US (occurrence: US)
  Receive Date: 20221212
  Receipt Date: 20230411
  Transmission Date: 20230721
  Serious: Yes (Other)
  Sender: FDA-Public Use
  Company Number: US-BRISTOL-MYERS SQUIBB COMPANY-2022-148729

PATIENT
  Age: 76 Year
  Sex: Female
  Weight: 74.39 kg

DRUGS (1)
  1. REVLIMID [Suspect]
     Active Substance: LENALIDOMIDE
     Indication: Myelodysplastic syndrome
     Dosage: DAILY ON DAYS 1-28 EVERY 28 DAYS
     Route: 048
     Dates: start: 20220620

REACTIONS (3)
  - Deep vein thrombosis [Recovering/Resolving]
  - Haemoglobin decreased [Not Recovered/Not Resolved]
  - Malaise [Unknown]

NARRATIVE: CASE EVENT DATE: 20221129
